FAERS Safety Report 16139668 (Version 2)
Quarter: 2019Q2

REPORT INFORMATION
  Report Type: Spontaneous
  Country: US (occurrence: US)
  Receive Date: 20190330
  Receipt Date: 20190422
  Transmission Date: 20190711
  Serious: Yes (Other)
  Sender: FDA-Public Use
  Company Number: PHEH2019US011923

PATIENT
  Age: 66 Year
  Sex: Female

DRUGS (6)
  1. POMALYST [Suspect]
     Active Substance: POMALIDOMIDE
     Indication: PRODUCT USED FOR UNKNOWN INDICATION
     Route: 065
  2. REVLIMID [Suspect]
     Active Substance: LENALIDOMIDE
     Indication: PLASMA CELL MYELOMA
     Dosage: UNK
     Route: 065
     Dates: start: 201304, end: 201306
  3. NINLARO [Suspect]
     Active Substance: IXAZOMIB CITRATE
     Indication: PLASMA CELL MYELOMA
     Dosage: UNK
     Route: 065
     Dates: start: 201601
  4. DARZALEX [Suspect]
     Active Substance: DARATUMUMAB
     Indication: PRODUCT USED FOR UNKNOWN INDICATION
     Route: 065
  5. DEXAMETHASONE. [Suspect]
     Active Substance: DEXAMETHASONE
     Dosage: UNK
     Route: 065
     Dates: start: 20190130
  6. DEXAMETHASONE. [Suspect]
     Active Substance: DEXAMETHASONE
     Indication: PLASMA CELL MYELOMA
     Dosage: 1 OT, QW
     Route: 065
     Dates: start: 201304

REACTIONS (18)
  - Hypoaesthesia [Unknown]
  - Insomnia [Unknown]
  - Post herpetic neuralgia [Unknown]
  - Gastrointestinal disorder [Unknown]
  - Tension [Unknown]
  - Pain [Unknown]
  - Malignant neoplasm progression [Unknown]
  - Restlessness [Unknown]
  - Nausea [Unknown]
  - Emotional disorder [Unknown]
  - Anxiety [Unknown]
  - Neuropathy peripheral [Unknown]
  - Cataract [Unknown]
  - Plasma cell myeloma [Unknown]
  - Feeling abnormal [Unknown]
  - Anger [Unknown]
  - Herpes zoster [Unknown]
  - Skin irritation [Unknown]

NARRATIVE: CASE EVENT DATE: 201304
